FAERS Safety Report 21498439 (Version 6)
Quarter: 2025Q2

REPORT INFORMATION
  Report Type: Spontaneous
  Country: BR (occurrence: BR)
  Receive Date: 20221024
  Receipt Date: 20250428
  Transmission Date: 20250717
  Serious: Yes (Life-Threatening, Other)
  Sender: CELLTRION
  Company Number: BR-CELLTRION INC.-2022BR017024

PATIENT

DRUGS (5)
  1. INFLIXIMAB [Suspect]
     Active Substance: INFLIXIMAB
     Indication: Prophylaxis
     Route: 042
     Dates: start: 20220830
  2. INFLIXIMAB [Suspect]
     Active Substance: INFLIXIMAB
     Indication: Crohn^s disease
     Route: 042
     Dates: start: 20221006
  3. INFLIXIMAB [Suspect]
     Active Substance: INFLIXIMAB
     Route: 042
     Dates: start: 20240404
  4. INFLIXIMAB [Suspect]
     Active Substance: INFLIXIMAB
     Route: 042
     Dates: start: 20250314
  5. AZATHIOPRINE [Concomitant]
     Active Substance: AZATHIOPRINE
     Indication: Crohn^s disease
     Route: 048

REACTIONS (8)
  - Dyschezia [Unknown]
  - Abdominal distension [Unknown]
  - Pain [Unknown]
  - Secretion discharge [Recovering/Resolving]
  - Influenza [Recovered/Resolved]
  - Cough [Recovering/Resolving]
  - Headache [Recovering/Resolving]
  - Intentional dose omission [Unknown]
